FAERS Safety Report 19262885 (Version 1)
Quarter: 2021Q2

REPORT INFORMATION
  Report Type: Other
  Country: GB (occurrence: GB)
  Receive Date: 20210517
  Receipt Date: 20210517
  Transmission Date: 20210717
  Serious: Yes (Death, Other)
  Sender: FDA-Public Use
  Company Number: GB-MACLEODS PHARMACEUTICALS US LTD-MAC2021030817

PATIENT

DRUGS (4)
  1. TENOFOVIR 245 MG [Suspect]
     Active Substance: TENOFOVIR DISOPROXIL
     Indication: HIV INFECTION
     Dosage: 245 MILLIGRAM, VIA NASOGASTRIC TUBE
     Dates: start: 202103
  2. DOLUTEGRAVIR [Concomitant]
     Active Substance: DOLUTEGRAVIR
     Indication: HIV INFECTION
     Dosage: 50 MILLIGRAM, VIA NASOGASTRIC TUBE
     Dates: start: 20210325, end: 20210330
  3. EMTRICITABINE [Suspect]
     Active Substance: EMTRICITABINE
     Indication: HIV INFECTION
     Dosage: 200 MILLIGRAM, EMTRICITABINE CAPSULE OF GILEAD VIA NASOGASTRIC TUBE
     Dates: start: 202103
  4. DESCOVY [Suspect]
     Active Substance: EMTRICITABINE\TENOFOVIR ALAFENAMIDE FUMARATE
     Indication: HIV INFECTION
     Dosage: UNK, VIA NASOGASTRIC TUBE
     Dates: start: 20210329

REACTIONS (5)
  - Respiratory arrest [Fatal]
  - Enteral nutrition [Not Recovered/Not Resolved]
  - Renal impairment [Unknown]
  - Wrong technique in product usage process [Recovered/Resolved]
  - Wrong technique in product usage process [Recovered/Resolved]

NARRATIVE: CASE EVENT DATE: 202103
